FAERS Safety Report 13016973 (Version 1)
Quarter: 2016Q4

REPORT INFORMATION
  Report Type: Report from Study
  Country: BR (occurrence: BR)
  Receive Date: 20161212
  Receipt Date: 20161212
  Transmission Date: 20170207
  Serious: Yes (Death)
  Sender: FDA-Public Use
  Company Number: PHHY2016BR170300

PATIENT
  Age: 92 Year
  Sex: Female
  Weight: 67 kg

DRUGS (2)
  1. EXELON PATCH [Suspect]
     Active Substance: RIVASTIGMINE
     Dosage: 13.3 MG, PATCH 15 CM2, QD
     Route: 062
  2. EXELON PATCH [Suspect]
     Active Substance: RIVASTIGMINE
     Indication: DEMENTIA ALZHEIMER^S TYPE
     Dosage: 9.5 MG, PATCH 10 CM2 QD
     Route: 062

REACTIONS (2)
  - Application site discolouration [Unknown]
  - Death [Fatal]

NARRATIVE: CASE EVENT DATE: 20161010
